FAERS Safety Report 13327784 (Version 1)
Quarter: 2017Q1

REPORT INFORMATION
  Report Type: Spontaneous
  Country: US (occurrence: US)
  Receive Date: 20170313
  Receipt Date: 20170313
  Transmission Date: 20170428
  Serious: No
  Sender: FDA-Public Use
  Company Number: US-JNJFOC-20170120687

PATIENT
  Sex: Female
  Weight: 47.63 kg

DRUGS (2)
  1. MENS ROGAINE EXTRA STRENGTH [Suspect]
     Active Substance: MINOXIDIL
     Route: 061
  2. MENS ROGAINE EXTRA STRENGTH [Suspect]
     Active Substance: MINOXIDIL
     Indication: ALOPECIA
     Dosage: ABOUT 1/4 CAP
     Route: 061
     Dates: end: 20170122

REACTIONS (9)
  - Intentional product misuse [Unknown]
  - Expired product administered [Unknown]
  - Dizziness [Recovered/Resolved]
  - Vision blurred [Recovered/Resolved]
  - Migraine [Recovering/Resolving]
  - Abnormal weight gain [Unknown]
  - Product use issue [Unknown]
  - Wrong technique in product usage process [Unknown]
  - Headache [Recovering/Resolving]
